FAERS Safety Report 16241838 (Version 1)
Quarter: 2019Q2

REPORT INFORMATION
  Report Type: Spontaneous
  Country: US (occurrence: US)
  Receive Date: 20190426
  Receipt Date: 20190426
  Transmission Date: 20190711
  Serious: Yes (Hospitalization)
  Sender: FDA-Public Use
  Company Number: US-HETERO CORPORATE-HET2019US00510

PATIENT
  Sex: Female
  Weight: 22 kg

DRUGS (2)
  1. OSELTAMIVIR [Suspect]
     Active Substance: OSELTAMIVIR
     Indication: INFLUENZA
     Dosage: 30 MG, BID (ONE TABLET FOR EVERY 12 HOURS)
     Route: 065
     Dates: start: 20190411
  2. AMOXICILLIN. [Concomitant]
     Active Substance: AMOXICILLIN
     Indication: PRODUCT USED FOR UNKNOWN INDICATION
     Dosage: UNK
     Route: 065

REACTIONS (4)
  - Vomiting [Unknown]
  - Urticaria [Unknown]
  - Hypersensitivity [Unknown]
  - Abdominal pain upper [Unknown]
